FAERS Safety Report 15286502 (Version 1)
Quarter: 2018Q3

REPORT INFORMATION
  Report Type: Report from Study
  Country: US (occurrence: US)
  Receive Date: 20180816
  Receipt Date: 20180816
  Transmission Date: 20181010
  Serious: Yes (Other)
  Sender: FDA-Public Use
  Company Number: US-ACTELION-A-NJ2018-177238

PATIENT
  Age: 47 Year
  Sex: Female
  Weight: 58.96 kg

DRUGS (3)
  1. SILDENAFIL CITRATE. [Concomitant]
     Active Substance: SILDENAFIL CITRATE
  2. WARFARIN [Concomitant]
     Active Substance: WARFARIN
  3. VELETRI [Suspect]
     Active Substance: EPOPROSTENOL
     Indication: PULMONARY ARTERIAL HYPERTENSION
     Dosage: 44.5 NG/KG, PER MIN
     Route: 042

REACTIONS (5)
  - Chest pain [Unknown]
  - Spinal fracture [Unknown]
  - Road traffic accident [Unknown]
  - Neck pain [Unknown]
  - Back pain [Unknown]
